FAERS Safety Report 21456243 (Version 2)
Quarter: 2022Q4

REPORT INFORMATION
  Report Type: Spontaneous
  Country: DZ (occurrence: DZ)
  Receive Date: 20221014
  Receipt Date: 20221103
  Transmission Date: 20230113
  Serious: Yes (Life-Threatening, Hospitalization, Other)
  Sender: FDA-Public Use
  Company Number: DZ-SA-SAC20221011001693

PATIENT
  Age: 18 Year
  Sex: Female
  Weight: 40 kg

DRUGS (1)
  1. ALDURAZYME [Suspect]
     Active Substance: LARONIDASE
     Indication: Mucopolysaccharidosis I
     Dosage: 100 IU/KG, QW
     Route: 065
     Dates: start: 20121126

REACTIONS (5)
  - Generalised tonic-clonic seizure [Unknown]
  - Infusion related reaction [Recovered/Resolved]
  - Chills [Recovered/Resolved]
  - Dyspnoea [Recovered/Resolved]
  - Drug monitoring procedure not performed [Unknown]

NARRATIVE: CASE EVENT DATE: 20221007
